FAERS Safety Report 13691450 (Version 1)
Quarter: 2017Q2

REPORT INFORMATION
  Report Type: Spontaneous
  Country: US (occurrence: US)
  Receive Date: 20170626
  Receipt Date: 20170626
  Transmission Date: 20170830
  Serious: Yes (Other)
  Sender: FDA-Public Use
  Company Number: US-ROCHE-792316

PATIENT
  Sex: Female
  Weight: 81.6 kg

DRUGS (9)
  1. VALTREX [Concomitant]
     Active Substance: VALACYCLOVIR HYDROCHLORIDE
     Route: 065
  2. LISINOPRIL. [Concomitant]
     Active Substance: LISINOPRIL
     Dosage: DRUG MENTIONED AS LISINPRIL
     Route: 065
  3. CALTRATE [Concomitant]
     Active Substance: CALCIUM CARBONATE
     Route: 065
  4. CELLCEPT [Suspect]
     Active Substance: MYCOPHENOLATE MOFETIL\MYCOPHENOLATE MOFETIL HYDROCHLORIDE
     Indication: LUPUS NEPHRITIS
     Dosage: DOSE FORM AND THERAPY DATES NOT REPORTED.?FREQUENCY MENTIONED AS BI
     Route: 048
  5. CENTRUM [Concomitant]
     Active Substance: VITAMINS
     Route: 065
  6. PRILOSEC [Concomitant]
     Active Substance: OMEPRAZOLE MAGNESIUM
     Route: 065
  7. EMPIRIN [Concomitant]
     Active Substance: ASPIRIN
     Dosage: DRUG MENTIONED AS EMPERIN
     Route: 065
  8. PLAQUENIL [Concomitant]
     Active Substance: HYDROXYCHLOROQUINE SULFATE
     Route: 065
  9. XANAX [Concomitant]
     Active Substance: ALPRAZOLAM
     Dosage: DRUG MENTIONED AS ZANAX
     Route: 065

REACTIONS (1)
  - Diverticulitis [Unknown]
